FAERS Safety Report 6627212-0 (Version None)
Quarter: 2010Q1

REPORT INFORMATION
  Report Type: 
  Country: None (occurrence: None)
  Receive Date: 20100311
  Receipt Date: 20100111
  Transmission Date: 20100710
  Serious: No
  Sender: FDA-Public Use
  Company Number: US-KINGPHARMUSA00001-K201000035

PATIENT
  Sex: Female

DRUGS (5)
  1. EMBEDA [Suspect]
     Indication: BONE PAIN
     Dosage: 20 MG, BID
     Route: 048
  2. EMBEDA [Suspect]
     Indication: PAIN IN EXTREMITY
     Dosage: 20 MG, BID
     Route: 048
     Dates: end: 20100108
  3. PROTONIX [Concomitant]
     Dosage: UNK
  4. REGLAN [Concomitant]
     Indication: NAUSEA
     Dosage: UNK
  5. ANTIHYPERTENSIVES [Concomitant]
     Indication: HYPERTENSION
     Dosage: UNK

REACTIONS (2)
  - NAUSEA [None]
  - WITHDRAWAL SYNDROME [None]
